FAERS Safety Report 13788628 (Version 1)
Quarter: 2017Q3

REPORT INFORMATION
  Report Type: Spontaneous
  Country: JP (occurrence: JP)
  Receive Date: 20170725
  Receipt Date: 20170725
  Transmission Date: 20171127
  Serious: Yes (Hospitalization)
  Sender: FDA-Public Use
  Company Number: JP-PFIZER INC-2017313881

PATIENT
  Age: 35 Year
  Sex: Female

DRUGS (1)
  1. CORTRIL [Suspect]
     Active Substance: HYDROCORTISONE
     Indication: HYPERADRENOCORTICISM
     Dosage: 10 MG, DAILY
     Route: 048

REACTIONS (1)
  - Intrauterine infection [Unknown]
